FAERS Safety Report 9403632 (Version 10)
Quarter: 2015Q3

REPORT INFORMATION
  Report Type: Spontaneous
  Country: CA (occurrence: CA)
  Receive Date: 20130717
  Receipt Date: 20150917
  Transmission Date: 20151125
  Serious: Yes (Other)
  Sender: FDA-Public Use
  Company Number: CA-ROCHE-1249284

PATIENT
  Age: 58 Year
  Sex: Female

DRUGS (9)
  1. SINGULAIR [Concomitant]
     Active Substance: MONTELUKAST SODIUM
  2. XOLAIR [Suspect]
     Active Substance: OMALIZUMAB
     Route: 058
     Dates: start: 20140304
  3. XOLAIR [Suspect]
     Active Substance: OMALIZUMAB
     Route: 058
     Dates: start: 20140318
  4. SPIRIVA [Concomitant]
     Active Substance: TIOTROPIUM BROMIDE MONOHYDRATE
  5. VENTOLIN [Concomitant]
     Active Substance: ALBUTEROL SULFATE
  6. XOLAIR [Suspect]
     Active Substance: OMALIZUMAB
     Indication: ASTHMA
     Route: 058
     Dates: start: 20121003
  7. XOLAIR [Suspect]
     Active Substance: OMALIZUMAB
     Route: 058
     Dates: start: 20150325
  8. SYMBICORT [Concomitant]
     Active Substance: BUDESONIDE\FORMOTEROL FUMARATE DIHYDRATE
  9. XOLAIR [Suspect]
     Active Substance: OMALIZUMAB
     Route: 058
     Dates: start: 20150824

REACTIONS (12)
  - Throat irritation [Unknown]
  - Wheezing [Unknown]
  - Heart rate increased [Unknown]
  - Cough [Unknown]
  - Asthma [Unknown]
  - Rhinorrhoea [Unknown]
  - Sputum purulent [Unknown]
  - Arthralgia [Unknown]
  - Pneumonia [Recovering/Resolving]
  - Nasopharyngitis [Unknown]
  - Blood pressure increased [Unknown]
  - Productive cough [Unknown]

NARRATIVE: CASE EVENT DATE: 201306
